FAERS Safety Report 7652327-8 (Version None)
Quarter: 2011Q3

REPORT INFORMATION
  Report Type: 
  Country: None (occurrence: None)
  Receive Date: 20110727
  Receipt Date: 20110727
  Transmission Date: 20111222
  Serious: Yes (Life-Threatening)
  Sender: FDA-Public Use
  Company Number: None

PATIENT
  Sex: Female
  Weight: 108.8633 kg

DRUGS (1)
  1. SIMPONI [Suspect]
     Indication: RHEUMATOID ARTHRITIS
     Dosage: 50 MG QMN SUB-Q
     Route: 058
     Dates: start: 20091005, end: 20110125

REACTIONS (5)
  - WEIGHT INCREASED [None]
  - OEDEMA PERIPHERAL [None]
  - ABASIA [None]
  - ASTHENIA [None]
  - CARDIAC DISORDER [None]
